FAERS Safety Report 4681822-9 (Version None)
Quarter: 2005Q2

REPORT INFORMATION
  Report Type: 
  Country: None (occurrence: None)
  Receive Date: 20050602
  Receipt Date: 20050524
  Transmission Date: 20051028
  Serious: Yes (Death, Hospitalization)
  Sender: FDA-Public Use
  Company Number: 2005-05-1657

PATIENT
  Age: 54 Year
  Sex: Male

DRUGS (2)
  1. PEG-INTRON [Suspect]
     Indication: HEPATITIS C
     Dosage: 60 MCG QWK, SUBCUTANEOUS
     Route: 058
     Dates: start: 20030101, end: 20050101
  2. RIBAVIRIN [Suspect]
     Indication: HEPATITIS C
     Dosage: 600 MG QD ORAL
     Route: 048
     Dates: start: 20030101, end: 20050101

REACTIONS (2)
  - CEREBRAL HAEMORRHAGE [None]
  - DRUG DOSE OMISSION [None]
